FAERS Safety Report 6696007-4 (Version None)
Quarter: 2010Q2

REPORT INFORMATION
  Report Type: 
  Country: None (occurrence: None)
  Receive Date: 20100423
  Receipt Date: 20100423
  Transmission Date: 20101027
  Serious: Yes (Other)
  Sender: FDA-Public Use
  Company Number: None

PATIENT
  Sex: Female
  Weight: 96 kg

DRUGS (3)
  1. LENALIDOMIDE [Suspect]
     Indication: HODGKIN'S DISEASE
     Dosage: 25MG QDAY PO
     Route: 048
     Dates: start: 20080207, end: 20100318
  2. CERVICAL RING CONTRACEPTION [Concomitant]
  3. SYNTHROID [Concomitant]

REACTIONS (3)
  - BLOOD HUMAN CHORIONIC GONADOTROPIN INCREASED [None]
  - PREGNANCY TEST FALSE POSITIVE [None]
  - TREATMENT NONCOMPLIANCE [None]
